FAERS Safety Report 5155977-6 (Version None)
Quarter: 2006Q4

REPORT INFORMATION
  Report Type: 
  Country: None (occurrence: None)
  Receive Date: 20061122
  Receipt Date: 20050926
  Transmission Date: 20070319
  Serious: Yes (Other)
  Sender: FDA-Public Use
  Company Number: PHEH2005US10678

PATIENT
  Age: 61 Year
  Sex: Female

DRUGS (9)
  1. AREDIA [Suspect]
     Indication: METASTASES TO BONE
     Dosage: 90 MG  OVER 2 HOURS MONTHLY
     Dates: start: 20010525, end: 20020321
  2. ARIMIDEX [Concomitant]
     Indication: BREAST CANCER
     Dosage: 1 MG, QD
     Route: 048
     Dates: start: 20010413, end: 20021114
  3. FASLODEX [Concomitant]
     Indication: BREAST CANCER METASTATIC
     Dosage: 250 MG MONTHLY
     Route: 030
     Dates: start: 20021114, end: 20030416
  4. EXEMESTANE [Concomitant]
     Indication: BREAST CANCER METASTATIC
     Dates: start: 20041101
  5. ZOMETA [Suspect]
     Indication: METASTASES TO BONE
     Dosage: 4 MG EVERY 21 DAYS
     Dates: start: 20020425, end: 20040920
  6. MOTRIN [Concomitant]
     Indication: PAIN
  7. TAXOTERE [Concomitant]
     Indication: BREAST CANCER
     Dosage: 67 MG, UNK
     Dates: start: 20040223
  8. XELODA [Concomitant]
     Indication: BREAST CANCER
     Dosage: 1500 MG, BID (2 WEEKS ON AND 1 WEEK OFF)
     Dates: start: 20030604
  9. TENORMIN [Concomitant]
     Indication: HYPERTENSION
     Dosage: 25 MG, QD
     Route: 048

REACTIONS (37)
  - ABSCESS DRAINAGE [None]
  - ALOPECIA [None]
  - ARTHRALGIA [None]
  - ASTHENIA [None]
  - ASTHENOPIA [None]
  - BACK PAIN [None]
  - BLOOD PRESSURE INCREASED [None]
  - BONE DISORDER [None]
  - COUGH [None]
  - DENTAL CARIES [None]
  - DENTAL OPERATION [None]
  - DIZZINESS [None]
  - DRY SOCKET [None]
  - DYSGEUSIA [None]
  - ELECTROCARDIOGRAM ST-T CHANGE [None]
  - FACE AND MOUTH X-RAY ABNORMAL [None]
  - FATIGUE [None]
  - IMPAIRED HEALING [None]
  - INFLUENZA LIKE ILLNESS [None]
  - INTERVERTEBRAL DISC DISORDER [None]
  - LYMPHADENOPATHY [None]
  - MALIGNANT NEOPLASM PROGRESSION [None]
  - MENINGEAL NEOPLASM [None]
  - METASTASES TO LIVER [None]
  - NAUSEA [None]
  - NEUROPATHY PERIPHERAL [None]
  - OSTEONECROSIS [None]
  - PLEURAL EFFUSION [None]
  - PRIMARY SEQUESTRUM [None]
  - PULMONARY MASS [None]
  - RADIATION INJURY [None]
  - RADIOTHERAPY [None]
  - SKIN FISSURES [None]
  - SPINAL CORD COMPRESSION [None]
  - TOOTH EXTRACTION [None]
  - TOOTH FRACTURE [None]
  - UPPER RESPIRATORY TRACT INFECTION [None]
